FAERS Safety Report 6406960-1 (Version None)
Quarter: 2009Q4

REPORT INFORMATION
  Report Type: 
  Country: None (occurrence: None)
  Receive Date: 20091014
  Receipt Date: 20090929
  Transmission Date: 20100525
  Serious: Yes (Hospitalization)
  Sender: FDA-Public Use
  Company Number: DSM-2009-01482

PATIENT
  Age: 82 Year
  Sex: Female

DRUGS (7)
  1. OLMESARTAN MEDOXOMIL [Suspect]
     Indication: HYPERTENSION
     Dosage: ORAL
     Route: 048
  2. VERCYTE [Suspect]
     Indication: THROMBOCYTOPENIA
     Dosage: ORAL
     Route: 048
     Dates: end: 20090701
  3. PLAVIX [Suspect]
     Indication: DRUG USE FOR UNKNOWN INDICATION
     Dosage: ORAL
     Route: 048
  4. RABEPRAZOLE SODIUM [Suspect]
     Indication: DRUG USE FOR UNKNOWN INDICATION
     Dosage: ORAL
     Route: 048
  5. HYDROCORTISONE (HYDROCORTISONE) (HYDROCORTISONE) [Concomitant]
  6. IXPRIM (PARACETAMOL, TRAMADOL HYDROCHLORIDE) (PARACETAMOL, TRAMADOL HY [Concomitant]
  7. DUPHALAC (LACTULOSE) (LACTULOSE) [Concomitant]

REACTIONS (11)
  - ASTHENIA [None]
  - BACK PAIN [None]
  - DECREASED APPETITE [None]
  - DYSPNOEA [None]
  - GENERAL PHYSICAL HEALTH DETERIORATION [None]
  - MOVEMENT DISORDER [None]
  - MYELOFIBROSIS [None]
  - PAIN [None]
  - PANCYTOPENIA [None]
  - SERUM FERRITIN INCREASED [None]
  - THROMBOCYTOSIS [None]
